FAERS Safety Report 8086094-3 (Version None)
Quarter: 2012Q1

REPORT INFORMATION
  Report Type: 
  Country: None (occurrence: None)
  Receive Date: 20120128
  Receipt Date: 20110603
  Transmission Date: 20120608
  Serious: No
  Sender: FDA-Public Use
  Company Number: US-ABBOTT-11P-163-0730201-00

PATIENT
  Sex: Female

DRUGS (3)
  1. SYNTHROID [Concomitant]
     Indication: PRODUCT USED FOR UNKNOWN INDICATION
     Dosage: TOOK WHILE ON HUMIRA
  2. HUMIRA [Suspect]
     Dates: end: 20110401
  3. HUMIRA [Suspect]
     Indication: PSORIASIS
     Dates: start: 20100501, end: 20101201

REACTIONS (2)
  - DRUG EFFECT DECREASED [None]
  - HEPATIC ENZYME INCREASED [None]
